FAERS Safety Report 25613801 (Version 1)
Quarter: 2025Q3

REPORT INFORMATION
  Report Type: Spontaneous
  Country: GB (occurrence: GB)
  Receive Date: 20250728
  Receipt Date: 20250728
  Transmission Date: 20251021
  Serious: Yes (Other)
  Sender: TEVA
  Company Number: None

PATIENT
  Age: 52 Year
  Sex: Female
  Weight: 67 kg

DRUGS (2)
  1. PREDNISOLONE [Suspect]
     Active Substance: PREDNISOLONE
     Indication: Carpal tunnel syndrome
     Route: 065
     Dates: start: 20250420, end: 20250425
  2. NAPROXEN [Concomitant]
     Active Substance: NAPROXEN
     Indication: Carpal tunnel syndrome
     Dates: start: 20250420, end: 20250425

REACTIONS (1)
  - Pre-existing condition improved [Recovered/Resolved]

NARRATIVE: CASE EVENT DATE: 20250421
